FAERS Safety Report 6388267-4 (Version None)
Quarter: 2009Q3

REPORT INFORMATION
  Report Type: 
  Country: None (occurrence: None)
  Receive Date: 20090930
  Receipt Date: 20090916
  Transmission Date: 20100115
  Serious: Yes (Other)
  Sender: FDA-Public Use
  Company Number: CAP09000245

PATIENT
  Age: 78 Year
  Sex: Female

DRUGS (7)
  1. ETIDRONATE DISODIUM [Suspect]
     Indication: BONE DISORDER
     Dosage: 1 TABLET DAILY, ORAL
     Route: 048
     Dates: end: 20090101
  2. NOVO ATENOL (ATENOLOL) [Concomitant]
  3. COATED ASPIRIN (ACETYLSALICYLIC ACID) [Concomitant]
  4. LIPITOR [Concomitant]
  5. VITAMIN B /00154901/ (RIBOFLAVIN) [Concomitant]
  6. MULTIVITAMIN /00831701/ (VITAMINS NOS) [Concomitant]
  7. LORAZAPEM (LORAZEPAM) [Concomitant]

REACTIONS (3)
  - DRUG INEFFECTIVE [None]
  - FEMUR FRACTURE [None]
  - PAIN [None]
